FAERS Safety Report 8087541-3 (Version None)
Quarter: 2012Q1

REPORT INFORMATION
  Report Type: 
  Country: None (occurrence: None)
  Receive Date: 20120128
  Receipt Date: 20110409
  Transmission Date: 20120608
  Serious: No
  Sender: FDA-Public Use
  Company Number: US-ABBOTT-11P-163-0717860-00

PATIENT
  Age: 55 Year
  Sex: Male

DRUGS (17)
  1. NOVOLOG [Concomitant]
     Indication: PRODUCT USED FOR UNKNOWN INDICATION
     Dosage: 10 UNITS/ML PER DAY BASED ON DAILY BLOOD SUGAR
  2. ASPIRIN [Concomitant]
     Indication: PRODUCT USED FOR UNKNOWN INDICATION
  3. LANTUS [Concomitant]
     Indication: PRODUCT USED FOR UNKNOWN INDICATION
     Dosage: EVERY NIGHT
  4. METFFORMIN HYDROCHLORIDE [Concomitant]
     Indication: DIABETES MELLITUS
  5. ATIVAN [Concomitant]
     Indication: INSOMNIA
  6. LOPRESSOR [Concomitant]
     Indication: HYPERTENSION
  7. PREDNISONE TAB [Concomitant]
     Indication: PULMONARY FIBROSIS
  8. RESTORIL [Concomitant]
     Indication: INSOMNIA
  9. LIPITOR [Concomitant]
     Indication: BLOOD CHOLESTEROL INCREASED
  10. DIOVAN [Concomitant]
     Indication: BLOOD PRESSURE
  11. B6 [Concomitant]
     Indication: PRODUCT USED FOR UNKNOWN INDICATION
  12. VITAMIN B-12 [Concomitant]
     Indication: PRODUCT USED FOR UNKNOWN INDICATION
  13. FOLIC ACID [Concomitant]
     Indication: PRODUCT USED FOR UNKNOWN INDICATION
     Dosage: DAILY
  14. LEVOTHYROXINE SODIUM [Concomitant]
     Indication: BLOOD THYROID STIMULATING HORMONE DECREASED
  15. OXYCODONE HCL [Concomitant]
     Indication: PAIN
     Dosage: 10/325MG, AS NEEDED
  16. HUMIRA [Suspect]
     Indication: RHEUMATOID ARTHRITIS
     Dates: start: 20101101, end: 20110302
  17. NEXIUM [Concomitant]
     Indication: GASTROOESOPHAGEAL REFLUX DISEASE

REACTIONS (1)
  - DRUG INEFFECTIVE [None]
